FAERS Safety Report 9727550 (Version 1)
Quarter: 2013Q4

REPORT INFORMATION
  Report Type: Spontaneous
  Country: RU (occurrence: RU)
  Receive Date: 20131203
  Receipt Date: 20131203
  Transmission Date: 20140711
  Serious: Yes (Hospitalization)
  Sender: FDA-Public Use
  Company Number: RU-BAYER-2013-144100

PATIENT
  Sex: Female

DRUGS (1)
  1. YARINA [Suspect]
     Dosage: UNK
     Dates: start: 2013, end: 201309

REACTIONS (2)
  - Alopecia [None]
  - Dermoid cyst [None]
